FAERS Safety Report 4911978-1 (Version None)
Quarter: 2006Q1

REPORT INFORMATION
  Report Type: 
  Country: None (occurrence: None)
  Receive Date: 20060213
  Receipt Date: 20060123
  Transmission Date: 20060701
  Serious: Yes (Other)
  Sender: FDA-Public Use
  Company Number: 2006011315

PATIENT
  Age: 57 Year
  Sex: Male
  Weight: 65 kg

DRUGS (7)
  1. EPIRUBICIN [Suspect]
     Indication: NON-HODGKIN'S LYMPHOMA
     Dosage: (140 MG, 2 IN 1 M), INTRAVENOUS
     Route: 042
     Dates: start: 20050607
  2. PREDNISONE TAB [Suspect]
     Indication: NON-HODGKIN'S LYMPHOMA
     Dosage: (1000 MG, 1 IN 1 M), ORAL
     Route: 048
     Dates: start: 20050607
  3. VINCRISTINE [Suspect]
     Indication: NON-HODGKIN'S LYMPHOMA
     Dosage: (2 MG, 2 IN 1 ), INTRAVENOUS
     Route: 042
     Dates: start: 20050607
  4. CYCLOPHOSPHAMIDE [Suspect]
     Indication: NON-HODGKIN'S LYMPHOMA
     Dosage: (1400 MG, 2 IN 1 M), INTRAVENOUS
     Route: 042
     Dates: start: 20050607
  5. MABTHERA       (RITUXIMAB) [Suspect]
     Indication: NON-HODGKIN'S LYMPHOMA
     Dosage: (700 MG, 2 IN 1 M), INTRAVENOUS
     Route: 042
     Dates: start: 20050607
  6. ZOFRAN [Concomitant]
  7. NAVOBAN (TROPISETRON HYDROCHLORIDE) [Concomitant]

REACTIONS (12)
  - ALOPECIA [None]
  - CONSTIPATION [None]
  - HYPERAESTHESIA [None]
  - HYPOTENSION [None]
  - MOTOR DYSFUNCTION [None]
  - MUSCLE SPASMS [None]
  - MUSCULAR WEAKNESS [None]
  - NEURALGIA [None]
  - PAIN IN EXTREMITY [None]
  - PARAESTHESIA [None]
  - PARESIS [None]
  - PYREXIA [None]
